FAERS Safety Report 22191877 (Version 1)
Quarter: 2023Q2

REPORT INFORMATION
  Report Type: Spontaneous
  Country: CN (occurrence: None)
  Receive Date: 20230410
  Receipt Date: 20230410
  Transmission Date: 20230722
  Serious: Yes (Other)
  Sender: FDA-Public Use
  Company Number: CN-ROCHE-3326997

PATIENT
  Age: 68 Year
  Sex: Male

DRUGS (11)
  1. TECENTRIQ [Suspect]
     Active Substance: ATEZOLIZUMAB
     Indication: Small cell lung cancer extensive stage
     Dosage: ATEZOLIZUMAB ++EP
     Route: 065
     Dates: start: 20210313
  2. TECENTRIQ [Suspect]
     Active Substance: ATEZOLIZUMAB
     Dosage: ATEZOLIZUMAB ++EP
     Route: 065
     Dates: start: 20210409, end: 20210719
  3. TECENTRIQ [Suspect]
     Active Substance: ATEZOLIZUMAB
     Dosage: ATEZOLIZUMAB ++EP
     Route: 065
     Dates: start: 20210813, end: 20210911
  4. TECENTRIQ [Suspect]
     Active Substance: ATEZOLIZUMAB
     Dosage: 3 WEEKS AS A CYCLES
     Route: 065
     Dates: start: 20211012
  5. ETOPOSIDE [Concomitant]
     Active Substance: ETOPOSIDE
     Indication: Small cell lung cancer extensive stage
     Dosage: ATEZOLIZUMAB ++EP
     Dates: start: 20210313
  6. ETOPOSIDE [Concomitant]
     Active Substance: ETOPOSIDE
     Dosage: ATEZOLIZUMAB ++EP
     Dates: start: 20210409, end: 20210719
  7. ETOPOSIDE [Concomitant]
     Active Substance: ETOPOSIDE
     Dosage: ATEZOLIZUMAB ++EP
     Dates: start: 20210813, end: 20210911
  8. CATEQUENTINIB [Concomitant]
     Active Substance: CATEQUENTINIB
     Dates: start: 20211012
  9. CISPLATIN [Concomitant]
     Active Substance: CISPLATIN
     Indication: Small cell lung cancer extensive stage
     Dosage: ATEZOLIZUMAB ++EP
     Dates: start: 20210313
  10. CISPLATIN [Concomitant]
     Active Substance: CISPLATIN
     Dosage: ATEZOLIZUMAB ++EP
     Dates: start: 20210409, end: 20210719
  11. CISPLATIN [Concomitant]
     Active Substance: CISPLATIN
     Dates: start: 20210813, end: 20210911

REACTIONS (1)
  - Febrile neutropenia [Unknown]

NARRATIVE: CASE EVENT DATE: 20210313
